FAERS Safety Report 5017878-3 (Version None)
Quarter: 2006Q2

REPORT INFORMATION
  Report Type: 
  Country: None (occurrence: None)
  Receive Date: 20060605
  Receipt Date: 20060123
  Transmission Date: 20061013
  Serious: Yes (Hospitalization)
  Sender: FDA-Public Use
  Company Number: US-AMGEN-KDL169343

PATIENT
  Sex: Female
  Weight: 89.9 kg

DRUGS (4)
  1. PROCRIT [Suspect]
     Indication: RENAL FAILURE CHRONIC
     Route: 058
     Dates: start: 20050615
  2. ACETYLSALICYLIC ACID SRT [Concomitant]
  3. PLAVIX [Concomitant]
  4. COREG [Concomitant]

REACTIONS (3)
  - DRUG INEFFECTIVE [None]
  - HYSTERECTOMY [None]
  - UTERINE HAEMORRHAGE [None]
